FAERS Safety Report 8552346-3 (Version None)
Quarter: 2012Q3

REPORT INFORMATION
  Report Type: 
  Country: None (occurrence: None)
  Receive Date: 20120731
  Receipt Date: 20120727
  Transmission Date: 20120928
  Serious: No
  Sender: FDA-Public Use
  Company Number: US-BAYER-2012-076202

PATIENT
  Age: 45 Year
  Sex: Female
  Weight: 71.655 kg

DRUGS (9)
  1. BACLOFEN [Concomitant]
     Dosage: 10 MG, UNK
  2. MULTIVITAMIN PREPARATION + MINERAL SUPPLEMENT [Concomitant]
  3. BETASERON [Suspect]
     Dosage: 0.75 ML, QOD
     Route: 058
  4. BETASERON [Suspect]
     Dosage: 1 ML, QOD
     Route: 058
  5. VITAMIN D [Concomitant]
     Dosage: 1000 U, UNK
  6. FLEXERIL [Concomitant]
     Dosage: 5 MG, UNK
  7. BETASERON [Suspect]
     Dosage: 0.25 ML, QOD
     Route: 058
  8. ACETAMINOPHEN [Concomitant]
     Dosage: 325 MG, UNK
  9. BETASERON [Suspect]
     Dosage: 0.5 ML, QOD

REACTIONS (1)
  - INJECTION SITE ERYTHEMA [None]
